FAERS Safety Report 14365194 (Version 3)
Quarter: 2018Q2

REPORT INFORMATION
  Report Type: Spontaneous
  Country: CN (occurrence: CN)
  Receive Date: 20180108
  Receipt Date: 20180424
  Transmission Date: 20180711
  Serious: Yes (Other)
  Sender: FDA-Public Use
  Company Number: CN-BAUSCH-BL-2017-036184

PATIENT
  Age: 52 Year
  Sex: Female

DRUGS (4)
  1. PREDNISOLONE. [Suspect]
     Active Substance: PREDNISOLONE
     Indication: B PRECURSOR TYPE ACUTE LEUKAEMIA
     Dosage: 1 CYCLICAL
     Route: 065
  2. VINCRISTINE [Suspect]
     Active Substance: VINCRISTINE
     Indication: B PRECURSOR TYPE ACUTE LEUKAEMIA
     Dosage: CYCLICAL
     Route: 065
  3. L-ASPARAGINASE [Suspect]
     Active Substance: ASPARAGINASE
     Indication: B PRECURSOR TYPE ACUTE LEUKAEMIA
     Dosage: CYCLICAL
     Route: 065
  4. DAUNORUBICIN [Suspect]
     Active Substance: DAUNORUBICIN
     Indication: B PRECURSOR TYPE ACUTE LEUKAEMIA
     Dosage: CYCLICAL
     Route: 065

REACTIONS (4)
  - Hypotension [Recovering/Resolving]
  - Metabolic acidosis [Recovering/Resolving]
  - Pancytopenia [Recovering/Resolving]
  - Tumour lysis syndrome [Recovering/Resolving]
